FAERS Safety Report 5512904-7 (Version None)
Quarter: 2007Q4

REPORT INFORMATION
  Report Type: 
  Country: None (occurrence: None)
  Receive Date: 20071112
  Receipt Date: 20071030
  Transmission Date: 20080405
  Serious: Yes (Other)
  Sender: FDA-Public Use
  Company Number: B0490969A

PATIENT
  Age: 75 Year
  Sex: Female
  Weight: 86 kg

DRUGS (15)
  1. AVANDIA [Suspect]
     Dosage: 4MG TWICE PER DAY
     Route: 048
     Dates: start: 20060725, end: 20070118
  2. GLUCOPHAGE [Concomitant]
     Dosage: 1000MG TWICE PER DAY
     Route: 048
  3. DIAMICRON [Concomitant]
     Dosage: 120MG PER DAY
     Route: 048
  4. LERCAN [Concomitant]
     Indication: HYPERTENSION
     Dosage: 10MG PER DAY
     Route: 048
  5. PLAVIX [Concomitant]
     Dosage: 75MG TWICE PER DAY
     Route: 048
  6. PERINDOPRIL ERBUMINE [Concomitant]
     Dosage: 4MG TWICE PER DAY
     Route: 048
  7. ASPEGIC 1000 [Concomitant]
     Dosage: 100MG PER DAY
     Route: 048
  8. TRIVASTAL [Concomitant]
     Dosage: 50MG TWICE PER DAY
     Route: 048
  9. PROPRANOLOL [Concomitant]
     Dosage: 20MG TWICE PER DAY
     Route: 048
  10. FUROSEMIDE [Concomitant]
     Dosage: 40MG PER DAY
     Route: 048
  11. PERIDYS [Concomitant]
     Dosage: 3UNIT PER DAY
     Route: 048
  12. ALLOPURINOL [Concomitant]
     Dosage: 200MG PER DAY
     Route: 048
  13. CRESTOR [Concomitant]
     Dosage: 5MG PER DAY
     Route: 048
  14. PANTOPRAZOLE SODIUM [Concomitant]
     Dosage: 20MG PER DAY
     Route: 048
  15. CARDENSIEL [Concomitant]
     Dosage: 3.75MG TWICE PER DAY
     Route: 048

REACTIONS (7)
  - CARDIAC FAILURE [None]
  - CORONARY ARTERY STENOSIS [None]
  - DRUG ADMINISTRATION ERROR [None]
  - DYSPNOEA [None]
  - EJECTION FRACTION DECREASED [None]
  - OEDEMA PERIPHERAL [None]
  - WEIGHT INCREASED [None]
